FAERS Safety Report 5655720-8 (Version None)
Quarter: 2008Q1

REPORT INFORMATION
  Report Type: 
  Country: None (occurrence: None)
  Receive Date: 20080307
  Receipt Date: 20080229
  Transmission Date: 20080703
  Serious: Yes (Death, Hospitalization)
  Sender: FDA-Public Use
  Company Number: US-BAXTER-2008BH001625

PATIENT
  Sex: Male
  Weight: 83 kg

DRUGS (4)
  1. HEPARIN SODIUM [Suspect]
     Indication: PROPHYLAXIS
     Dosage: DOSE UNIT:CUBIC CENTIMETER
     Route: 033
     Dates: start: 20060401, end: 20080201
  2. FOSRENAL [Concomitant]
     Indication: RENAL FAILURE CHRONIC
     Dosage: DOSE UNIT:UNKNOWN
     Route: 048
     Dates: end: 20080201
  3. HUMALOG [Concomitant]
     Indication: DIABETES MELLITUS
     Dosage: DOSE UNIT:UNKNOWN
     Route: 058
     Dates: end: 20080201
  4. LANTUS [Concomitant]
     Indication: DIABETES MELLITUS
     Dosage: DOSE UNIT:UNKNOWN
     Route: 065
     Dates: end: 20080201

REACTIONS (5)
  - ABDOMINAL PAIN UPPER [None]
  - DIABETES MELLITUS [None]
  - DIARRHOEA [None]
  - HYPOTENSION [None]
  - RENAL FAILURE CHRONIC [None]
